FAERS Safety Report 7416557-2 (Version None)
Quarter: 2011Q2

REPORT INFORMATION
  Report Type: 
  Country: None (occurrence: None)
  Receive Date: 20110415
  Receipt Date: 20110408
  Transmission Date: 20111010
  Serious: Yes (Hospitalization)
  Sender: FDA-Public Use
  Company Number: AR-AMGEN-ARGSP2011014089

PATIENT
  Age: 45 Year
  Sex: Female
  Weight: 108 kg

DRUGS (5)
  1. ENBREL [Suspect]
     Indication: RHEUMATOID ARTHRITIS
     Dosage: 50 MG, WEEKLY
     Route: 058
     Dates: start: 20090101, end: 20110201
  2. ENALAPRIL MALEATE [Concomitant]
     Dosage: UNK
  3. METFORMIN [Concomitant]
     Dosage: UNK
  4. ENBREL [Suspect]
     Dosage: UNK
     Dates: start: 20110301
  5. OMEPRAZOLE [Concomitant]
     Dosage: UNK

REACTIONS (5)
  - PROTEIN URINE [None]
  - THYROID DISORDER [None]
  - PHARYNGITIS [None]
  - PHARYNGEAL INFLAMMATION [None]
  - TOOTH INFECTION [None]
